FAERS Safety Report 10101419 (Version 1)
Quarter: 2014Q2

REPORT INFORMATION
  Report Type: Spontaneous
  Country: US (occurrence: US)
  Receive Date: 20140424
  Receipt Date: 20140424
  Transmission Date: 20141212
  Serious: No
  Sender: FDA-Public Use
  Company Number: US-BAYER-2014-057892

PATIENT
  Age: 53 Year
  Sex: Female

DRUGS (2)
  1. ANGELIQ [Suspect]
     Indication: MENOPAUSAL SYMPTOMS
     Dosage: 1 DF, UNK
     Dates: start: 201107
  2. ANGELIQ [Suspect]
     Indication: HOT FLUSH

REACTIONS (1)
  - Sinusitis [None]
